FAERS Safety Report 10525533 (Version 1)
Quarter: 2014Q4

REPORT INFORMATION
  Report Type: Spontaneous
  Country: CH (occurrence: None)
  Receive Date: 20141015
  Receipt Date: 20141015
  Transmission Date: 20150528
  Serious: Yes (Other)
  Sender: FDA-Public Use
  Company Number: 20140649

PATIENT
  Age: 19 Year
  Sex: Female
  Weight: 40 kg

DRUGS (4)
  1. CIFLOX (CIPROFLOXACIN HYDROCHLORIDE) [Concomitant]
     Active Substance: CIPROFLOXACIN HYDROCHLORIDE
  2. FERINJECT [Suspect]
     Active Substance: FERRIC CARBOXYMALTOSE
     Indication: ANAEMIA
     Route: 042
     Dates: start: 20140806, end: 20140806
  3. IMUREL (AZATHIOPRINE) [Concomitant]
  4. FLAGYL (METRONIDAZOLE) [Concomitant]

REACTIONS (5)
  - General physical health deterioration [None]
  - Erythema [None]
  - Oxygen saturation decreased [None]
  - Vomiting [None]
  - Hot flush [None]

NARRATIVE: CASE EVENT DATE: 20140806
